FAERS Safety Report 13201293 (Version 2)
Quarter: 2017Q2

REPORT INFORMATION
  Report Type: Report from Study
  Country: US (occurrence: US)
  Receive Date: 20170209
  Receipt Date: 20170602
  Transmission Date: 20170830
  Serious: Yes (Hospitalization)
  Sender: FDA-Public Use
  Company Number: US-VIFOR (INTERNATIONAL) INC.-VIT-2017-01083

PATIENT
  Age: 62 Year
  Sex: Male
  Weight: 83.91 kg

DRUGS (15)
  1. VELTASSA [Suspect]
     Active Substance: PATIROMER
     Route: 048
     Dates: start: 20161230
  2. GABAPENTIN. [Concomitant]
     Active Substance: GABAPENTIN
  3. WARFARIN [Concomitant]
     Active Substance: WARFARIN
  4. VELTASSA [Suspect]
     Active Substance: PATIROMER
     Dates: start: 20161206
  5. ONDANSETRON [Concomitant]
     Active Substance: ONDANSETRON
  6. SENSIPAR [Concomitant]
     Active Substance: CINACALCET HYDROCHLORIDE
  7. VELTASSA [Suspect]
     Active Substance: PATIROMER
     Indication: HYPERKALAEMIA
     Route: 048
     Dates: start: 20161210
  8. RENVELA [Concomitant]
     Active Substance: SEVELAMER CARBONATE
  9. ATORVASTATIN [Concomitant]
     Active Substance: ATORVASTATIN
  10. APRISO [Concomitant]
     Active Substance: MESALAMINE
  11. MIDODRINE [Concomitant]
     Active Substance: MIDODRINE
  12. TRAMADOL. [Concomitant]
     Active Substance: TRAMADOL
  13. CLOPIDOGREL [Concomitant]
     Active Substance: CLOPIDOGREL BISULFATE
  14. MESALAZINE [Concomitant]
     Active Substance: MESALAMINE
  15. VIRT-CAPS [Concomitant]
     Active Substance: ASCORBIC ACID\BIOTIN\CALCIUM PANTOTHENATE\CYANOCOBALAMIN\FOLIC ACID\NIACINAMIDE\PYRIDOXINE HYDROCHLORIDE\RIBOFLAVIN\THIAMINE MONONITRATE

REACTIONS (4)
  - Drug dose omission [Recovered/Resolved]
  - Inappropriate schedule of drug administration [Recovered/Resolved]
  - Heart valve operation [Not Recovered/Not Resolved]
  - Calcinosis [Unknown]

NARRATIVE: CASE EVENT DATE: 20170120
